FAERS Safety Report 8090701-9 (Version None)
Quarter: 2012Q1

REPORT INFORMATION
  Report Type: 
  Country: None (occurrence: None)
  Receive Date: 20120130
  Receipt Date: 20120127
  Transmission Date: 20120608
  Serious: Yes (Disabling)
  Sender: FDA-Public Use
  Company Number: US-MERCK-1109USA02510

PATIENT
  Age: 33 Year
  Sex: Male

DRUGS (1)
  1. PROPECIA [Suspect]
     Indication: ALOPECIA
     Route: 048
     Dates: start: 20030101, end: 20070101

REACTIONS (19)
  - PSYCHOSEXUAL DISORDER [None]
  - PARAESTHESIA [None]
  - PHARYNGITIS [None]
  - COSTOCHONDRITIS [None]
  - ANXIETY [None]
  - EMOTIONAL DISTRESS [None]
  - CHEST PAIN [None]
  - HORDEOLUM [None]
  - EPIDIDYMITIS [None]
  - NERVE INJURY [None]
  - ARTHRALGIA [None]
  - TESTICULAR MASS [None]
  - ORCHITIS [None]
  - PALPITATIONS [None]
  - ERECTILE DYSFUNCTION [None]
  - MASS [None]
  - TESTICULAR DISORDER [None]
  - TESTICULAR PAIN [None]
  - EAR PAIN [None]
